FAERS Safety Report 4347918-6 (Version None)
Quarter: 2004Q1

REPORT INFORMATION
  Report Type: 
  Country: None (occurrence: None)
  Receive Date: 20040325
  Receipt Date: 20040225
  Transmission Date: 20041129
  Serious: No
  Sender: FDA-Public Use
  Company Number: USA031152686

PATIENT
  Age: 79 Year
  Sex: Female

DRUGS (13)
  1. FORTEO [Suspect]
     Indication: OSTEOPOROSIS
     Dates: start: 20031114
  2. METAMUCIL-2 [Concomitant]
  3. CIPRO [Concomitant]
  4. AMOXICILLIN AND CLAVULANATE POTASSIUM [Concomitant]
  5. DIOVAN [Concomitant]
  6. LOTREL [Concomitant]
  7. ALPRAZOLAM [Concomitant]
  8. ALBUTEROL [Concomitant]
  9. SEREVENT DISKUS (SALMETEROL XINAFOATE) [Concomitant]
  10. CALCIUM [Concomitant]
  11. MULTI-VITAMIN [Concomitant]
  12. MULTIVITAMIN AND MINERAL SUPPLEMENT [Concomitant]
  13. METAMUCIL-2 [Concomitant]

REACTIONS (4)
  - CONSTIPATION [None]
  - DIVERTICULITIS [None]
  - HEADACHE [None]
  - NECK PAIN [None]
